FAERS Safety Report 5340496-4 (Version None)
Quarter: 2007Q2

REPORT INFORMATION
  Report Type: 
  Country: None (occurrence: None)
  Receive Date: 20070405
  Receipt Date: 20070129
  Transmission Date: 20071010
  Serious: Yes (Other)
  Sender: FDA-Public Use
  Company Number: US200612000666

PATIENT
  Age: 36 Year
  Sex: Female
  Weight: 72.6 kg

DRUGS (3)
  1. CYMBALTA [Suspect]
     Indication: DEPRESSION
     Dosage: SEE IMAGE
     Route: 048
     Dates: start: 20061101, end: 20060101
  2. CYMBALTA [Suspect]
     Indication: DEPRESSION
     Dosage: SEE IMAGE
     Route: 048
     Dates: start: 20060101
  3. PYCNOGENOL (PYCNOGENOL) [Concomitant]

REACTIONS (1)
  - SUICIDAL IDEATION [None]
